FAERS Safety Report 9277152 (Version 2)
Quarter: 2013Q2

REPORT INFORMATION
  Report Type: Report from Study
  Country: US (occurrence: US)
  Receive Date: 20130508
  Receipt Date: 20130625
  Transmission Date: 20140414
  Serious: Yes (Other)
  Sender: FDA-Public Use
  Company Number: US-MYLANLABS-2013S1009541

PATIENT
  Age: 23 Year
  Sex: Female

DRUGS (2)
  1. AMNESTEEM CAPSULES [Suspect]
     Route: 048
     Dates: start: 20130207, end: 20130301
  2. ORAL CONTRACEPTIVE NOS [Suspect]
     Route: 048
     Dates: end: 20130301

REACTIONS (6)
  - Maternal exposure before pregnancy [Recovered/Resolved]
  - Abortion spontaneous [Recovered/Resolved]
  - Breast discharge [Not Recovered/Not Resolved]
  - Breast tenderness [Not Recovered/Not Resolved]
  - Rash [Recovered/Resolved]
  - Pruritus generalised [Recovered/Resolved]
